FAERS Safety Report 12392287 (Version 1)
Quarter: 2016Q2

REPORT INFORMATION
  Report Type: Spontaneous
  Country: US (occurrence: US)
  Receive Date: 20160523
  Receipt Date: 20160523
  Transmission Date: 20160815
  Serious: Yes (Other)
  Sender: FDA-Public Use
  Company Number: US-BEH-2016060110

PATIENT
  Age: 55 Year
  Sex: Male
  Weight: 48 kg

DRUGS (23)
  1. MUCINEX [Concomitant]
     Active Substance: GUAIFENESIN
  2. LIDOCAINE. [Concomitant]
     Active Substance: LIDOCAINE
  3. SYMBICORT [Concomitant]
     Active Substance: BUDESONIDE\FORMOTEROL FUMARATE DIHYDRATE
  4. CHLORAMPHENICOL [Concomitant]
     Active Substance: CHLORAMPHENICOL
  5. MEGESTROL ACETATE. [Concomitant]
     Active Substance: MEGESTROL ACETATE
  6. ALBUTEROL. [Concomitant]
     Active Substance: ALBUTEROL
  7. ZEMAIRA [Suspect]
     Active Substance: .ALPHA.1-PROTEINASE INHIBITOR HUMAN
     Indication: ALPHA-1 ANTI-TRYPSIN DEFICIENCY
     Route: 042
  8. FAMOTIDINE. [Concomitant]
     Active Substance: FAMOTIDINE
  9. FISH OIL [Concomitant]
     Active Substance: FISH OIL
  10. AZITHROMYCIN ANHYDROUS. [Concomitant]
     Active Substance: AZITHROMYCIN ANHYDROUS
  11. ADVAIR HFA [Concomitant]
     Active Substance: FLUTICASONE PROPIONATE\SALMETEROL XINAFOATE
  12. EPIPEN [Concomitant]
     Active Substance: EPINEPHRINE
  13. PROVENTIL [Concomitant]
     Active Substance: ALBUTEROL
  14. THEOPHYLLINE ANHYDROUS. [Concomitant]
     Active Substance: THEOPHYLLINE ANHYDROUS
  15. TESTOSTERONE ENANTHATE. [Concomitant]
     Active Substance: TESTOSTERONE ENANTHATE
  16. DIPHENHYDRAMINE. [Concomitant]
     Active Substance: DIPHENHYDRAMINE
  17. OXYGEN. [Concomitant]
     Active Substance: OXYGEN
  18. PRENATAL [Concomitant]
     Active Substance: VITAMINS
  19. NORMAL SALINE [Concomitant]
     Active Substance: SODIUM CHLORIDE
  20. SODIUM CHLORIDE. [Concomitant]
     Active Substance: SODIUM CHLORIDE
  21. XANAX [Concomitant]
     Active Substance: ALPRAZOLAM
  22. NYSTATIN. [Concomitant]
     Active Substance: NYSTATIN
  23. VITAMIN D [Concomitant]
     Active Substance: CHOLECALCIFEROL

REACTIONS (3)
  - Cough [Recovered/Resolved]
  - Metapneumovirus infection [Recovered/Resolved]
  - Dyspnoea [Recovered/Resolved]

NARRATIVE: CASE EVENT DATE: 20160306
